FAERS Safety Report 4448927-9 (Version None)
Quarter: 2004Q3

REPORT INFORMATION
  Report Type: 
  Country: None (occurrence: None)
  Receive Date: 20040909
  Receipt Date: 20040827
  Transmission Date: 20050211
  Serious: Yes (Hospitalization)
  Sender: FDA-Public Use
  Company Number: 2004231055US

PATIENT
  Sex: Male

DRUGS (1)
  1. XANAX XR [Suspect]

REACTIONS (2)
  - CEREBROVASCULAR ACCIDENT [None]
  - INTENTIONAL OVERDOSE [None]
